FAERS Safety Report 23782327 (Version 1)
Quarter: 2024Q2

REPORT INFORMATION
  Report Type: Spontaneous
  Country: CO (occurrence: CO)
  Receive Date: 20240425
  Receipt Date: 20240425
  Transmission Date: 20240716
  Serious: Yes (Hospitalization, Disabling, Other)
  Sender: FDA-Public Use
  Company Number: CO-GLAXOSMITHKLINE-CO2024AMR035686

PATIENT

DRUGS (2)
  1. BELIMUMAB [Suspect]
     Active Substance: BELIMUMAB
     Indication: Systemic lupus erythematosus
     Dosage: 540 MG, Q4W
     Dates: start: 20210819
  2. BELIMUMAB [Suspect]
     Active Substance: BELIMUMAB
     Dosage: 540 MG, MO

REACTIONS (6)
  - Systemic lupus erythematosus [Not Recovered/Not Resolved]
  - Inflammation [Not Recovered/Not Resolved]
  - Erythema [Not Recovered/Not Resolved]
  - Vomiting [Not Recovered/Not Resolved]
  - Food intolerance [Not Recovered/Not Resolved]
  - Product dose omission issue [Unknown]
